FAERS Safety Report 19681999 (Version 1)
Quarter: 2021Q3

REPORT INFORMATION
  Report Type: Other
  Country: US (occurrence: US)
  Receive Date: 20210810
  Receipt Date: 20210810
  Transmission Date: 20211014
  Serious: Yes (Other)
  Sender: FDA-Public Use
  Company Number: US-GUTHY-RENKER, LLC-2114840

PATIENT
  Sex: Female

DRUGS (1)
  1. MEANINGFUL BEAUTY CINDY CRAWFORD SKIN BRIGHTENING DECOLLETE AND NECK TREATMENT SPF 15 [Suspect]
     Active Substance: AVOBENZONE\OCTINOXATE\OCTISALATE\OXYBENZONE
     Dates: start: 20210225, end: 20210225

REACTIONS (1)
  - Urticaria [Recovered/Resolved]

NARRATIVE: CASE EVENT DATE: 20210225
